FAERS Safety Report 8235494 (Version 2)
Quarter: 2013Q3

REPORT INFORMATION
  Report Type: Spontaneous
  Country: US (occurrence: US)
  Receive Date: 20111108
  Receipt Date: 20130916
  Transmission Date: 20140515
  Serious: Yes (Congenital Anomaly, Other)
  Sender: FDA-Public Use
  Company Number: US-PFIZER INC-2011270395

PATIENT
  Age: 2 Year
  Sex: Male

DRUGS (2)
  1. ZOLOFT [Suspect]
     Dosage: UNK
     Route: 064
     Dates: start: 20040315, end: 20041120
  2. PRENATAL VITAMINS [Concomitant]
     Dosage: UNK
     Route: 064

REACTIONS (5)
  - Maternal exposure timing unspecified [Unknown]
  - Heart disease congenital [Unknown]
  - Congenital aortic valve stenosis [Unknown]
  - Bicuspid aortic valve [Unknown]
  - Aortic disorder [Unknown]
